FAERS Safety Report 5288164-1 (Version None)
Quarter: 2007Q1

REPORT INFORMATION
  Report Type: 
  Country: None (occurrence: None)
  Receive Date: 20070116
  Receipt Date: 20061019
  Transmission Date: 20070707
  Serious: No
  Sender: FDA-Public Use
  Company Number: 2006SP003752

PATIENT
  Age: 60 Year
  Sex: Female
  Weight: 56.6996 kg

DRUGS (4)
  1. LUNESTA [Suspect]
     Indication: INSOMNIA
     Dosage: 2 MG;HS;ORAL
     Route: 048
     Dates: start: 20060901
  2. SYNTHROID [Concomitant]
  3. SERZONE [Concomitant]
  4. UNISOM [Concomitant]

REACTIONS (3)
  - DRUG DEPENDENCE [None]
  - DYSGEUSIA [None]
  - REBOUND EFFECT [None]
